FAERS Safety Report 20882077 (Version 1)
Quarter: 2022Q2

REPORT INFORMATION
  Report Type: Spontaneous
  Country: CN (occurrence: CN)
  Receive Date: 20220527
  Receipt Date: 20220527
  Transmission Date: 20220720
  Serious: Yes (Other)
  Sender: FDA-Public Use
  Company Number: CN-SUN PHARMACEUTICAL INDUSTRIES LTD-2022R1-337952

PATIENT
  Age: 46 Year
  Sex: Male

DRUGS (4)
  1. CARBOPLATIN [Suspect]
     Active Substance: CARBOPLATIN
     Indication: Chemotherapy
     Dosage: 500 MILLIGRAM (D1)
     Route: 065
  2. ALECTINIB [Suspect]
     Active Substance: ALECTINIB
     Indication: Neoplasm progression
     Dosage: 600 MILLIGRAM, BID
     Route: 065
  3. ENDOSTATIN [Suspect]
     Active Substance: ENDOSTATIN
     Indication: Evidence based treatment
     Dosage: 30 MILLIGRAM
     Route: 065
  4. PACLITAXEL [Suspect]
     Active Substance: PACLITAXEL
     Indication: Chemotherapy
     Dosage: 400 MILLIGRAM  (D1)
     Route: 065

REACTIONS (1)
  - Disease progression [Unknown]
